FAERS Safety Report 15556317 (Version 7)
Quarter: 2020Q1

REPORT INFORMATION
  Report Type: Report from Study
  Country: DE (occurrence: DE)
  Receive Date: 20181026
  Receipt Date: 20200327
  Transmission Date: 20200409
  Serious: Yes (Death, Hospitalization, Other)
  Sender: FDA-Public Use
  Company Number: PHHY2018DE099357

PATIENT
  Sex: Female
  Weight: 60 kg

DRUGS (3)
  1. LETROZOL PUREN [Suspect]
     Active Substance: LETROZOLE
     Indication: BREAST CANCER METASTATIC
     Dosage: 2.5 MG, QD
     Route: 048
     Dates: start: 20180718
  2. KISQALI [Suspect]
     Active Substance: RIBOCICLIB
     Dosage: 400 MG, QD
     Route: 048
     Dates: start: 20180815, end: 20180823
  3. KISQALI [Suspect]
     Active Substance: RIBOCICLIB
     Indication: BREAST CANCER METASTATIC
     Dosage: 600 MG, QD
     Route: 048
     Dates: start: 20180718, end: 20180814

REACTIONS (12)
  - Metastases to lung [Unknown]
  - Mitral valve disease [Unknown]
  - Back pain [Unknown]
  - Respiratory failure [Unknown]
  - Polyneuropathy [Recovered/Resolved]
  - Lung adenocarcinoma [Not Recovered/Not Resolved]
  - Dyspnoea [Not Recovered/Not Resolved]
  - Pneumonia [Unknown]
  - Metastases to central nervous system [Not Recovered/Not Resolved]
  - Breast cancer metastatic [Fatal]
  - Malignant neoplasm progression [Fatal]
  - Pyrexia [Recovered/Resolved]

NARRATIVE: CASE EVENT DATE: 20180729
